FAERS Safety Report 6538518-8 (Version None)
Quarter: 2010Q1

REPORT INFORMATION
  Report Type: 
  Country: None (occurrence: None)
  Receive Date: 20100114
  Receipt Date: 20100108
  Transmission Date: 20100710
  Serious: Yes (Hospitalization)
  Sender: FDA-Public Use
  Company Number: NL-GENENTECH-295703

PATIENT
  Sex: Male
  Weight: 70 kg

DRUGS (13)
  1. RITUXIMAB [Suspect]
     Indication: DIFFUSE LARGE B-CELL LYMPHOMA
     Dosage: 671 MG, UNK
     Route: 042
     Dates: start: 20091120
  2. RITUXIMAB [Suspect]
     Dosage: UNK
     Route: 042
     Dates: start: 20091127
  3. PREDNISONE [Suspect]
     Indication: DIFFUSE LARGE B-CELL LYMPHOMA
     Dosage: 5 MG, QD
     Route: 048
     Dates: start: 20091120
  4. PREDNISONE [Suspect]
     Dosage: 10 MG, QD
     Route: 048
  5. CYCLOPHOSPHAMIDE [Suspect]
     Indication: DIFFUSE LARGE B-CELL LYMPHOMA
     Dosage: 1343 MG, QD
     Route: 042
     Dates: start: 20091120
  6. DOXORUBICIN HCL [Suspect]
     Indication: DIFFUSE LARGE B-CELL LYMPHOMA
     Dosage: 90 MG, QD
     Route: 042
     Dates: start: 20091120
  7. VINCRISTINE [Suspect]
     Indication: DIFFUSE LARGE B-CELL LYMPHOMA
     Dosage: 2 MG, QD
     Route: 042
     Dates: start: 20091120
  8. THYRAX [Concomitant]
     Indication: HYPOTHYROIDISM
     Dosage: 0.125 UNK, UNK
     Route: 048
     Dates: start: 20000101
  9. NEXIUM [Concomitant]
     Indication: GASTRITIS
     Dosage: 40 UNK, UNK
     Route: 048
     Dates: start: 20000101
  10. COTRIM [Concomitant]
     Indication: PROPHYLAXIS
     Dosage: UNK
     Route: 048
     Dates: start: 20091020
  11. VALACYCLOVIR HCL [Concomitant]
     Indication: PROPHYLAXIS
     Dosage: 500 MG, UNK
     Route: 048
     Dates: start: 20091023
  12. CLEMASTINE FUMARATE [Concomitant]
     Indication: PROPHYLAXIS
     Dosage: UNK
     Route: 042
     Dates: start: 20091120
  13. PARACETAMOL [Concomitant]
     Indication: PROPHYLAXIS
     Dosage: UNK
     Route: 048
     Dates: start: 20091120

REACTIONS (4)
  - FALL [None]
  - FEBRILE NEUTROPENIA [None]
  - ILEUS [None]
  - LOSS OF CONSCIOUSNESS [None]
